FAERS Safety Report 13426907 (Version 2)
Quarter: 2017Q2

REPORT INFORMATION
  Report Type: Spontaneous
  Country: US (occurrence: US)
  Receive Date: 20170411
  Receipt Date: 20170501
  Transmission Date: 20170830
  Serious: No
  Sender: FDA-Public Use
  Company Number: US-PFIZER INC-2017152698

PATIENT
  Age: 75 Year
  Sex: Male

DRUGS (1)
  1. BACTRIM [Suspect]
     Active Substance: SULFAMETHOXAZOLE\TRIMETHOPRIM
     Dosage: UNK

REACTIONS (1)
  - Drug hypersensitivity [Unknown]
